FAERS Safety Report 12173543 (Version 1)
Quarter: 2016Q1

REPORT INFORMATION
  Report Type: Spontaneous
  Country: DE (occurrence: DE)
  Receive Date: 20160311
  Receipt Date: 20160311
  Transmission Date: 20160526
  Serious: Yes (Other)
  Sender: FDA-Public Use
  Company Number: DE-GUERBET LLC-1048966

PATIENT
  Age: 17 Year
  Sex: Female
  Weight: 66 kg

DRUGS (5)
  1. DOTAREM [Suspect]
     Active Substance: GADOTERATE MEGLUMINE
     Indication: NUCLEAR MAGNETIC RESONANCE IMAGING
     Route: 042
  2. GRIPPOSTAD(CHLORPHENAMINE MALEATE, PARACETAMOL, ASCORBIC ACID, [Concomitant]
  3. PARACETAMOL TABLETS [Concomitant]
  4. LEMOCIN THROAT TABLETS(TYROTHRICIN, CETRIMONIUM BROMIDE, [Concomitant]
  5. SINUC COUGH SYRUP(IVY LEAF EXTRACT) [Concomitant]

REACTIONS (1)
  - Alopecia [Not Recovered/Not Resolved]

NARRATIVE: CASE EVENT DATE: 20160222
